FAERS Safety Report 17791276 (Version 1)
Quarter: 2020Q2

REPORT INFORMATION
  Report Type: Spontaneous
  Country: US (occurrence: US)
  Receive Date: 20200514
  Receipt Date: 20200514
  Transmission Date: 20200714
  Serious: Yes (Hospitalization)
  Sender: FDA-Public Use
  Company Number: None

PATIENT
  Age: 63 Year
  Sex: Female

DRUGS (5)
  1. TEMOZOLOMIDE 5MG/20MG/100MG CAP [Suspect]
     Active Substance: TEMOZOLOMIDE
     Indication: BRAIN NEOPLASM MALIGNANT
     Dates: start: 20200218
  2. TEMOZOLOMIDE 100MG CAP (7) [Suspect]
     Active Substance: TEMOZOLOMIDE
  3. LEVETIRACETA [Concomitant]
  4. TEMOZOLOMIDE 20MG CAP [Concomitant]
     Active Substance: TEMOZOLOMIDE
  5. TEMOZOLOMIDE 100MG CAP (14) [Suspect]
     Active Substance: TEMOZOLOMIDE

REACTIONS (1)
  - Seizure [None]

NARRATIVE: CASE EVENT DATE: 20200514
